FAERS Safety Report 7480597-8 (Version None)
Quarter: 2011Q2

REPORT INFORMATION
  Report Type: 
  Country: None (occurrence: None)
  Receive Date: 20110516
  Receipt Date: 20110506
  Transmission Date: 20111010
  Serious: Yes (Other)
  Sender: FDA-Public Use
  Company Number: PHFR2011GB02404

PATIENT
  Sex: Female

DRUGS (2)
  1. HYOSCINE HYDROBROMIDE [Concomitant]
  2. CLOZARIL [Suspect]
     Indication: SCHIZOPHRENIA
     Dosage: UNK MG,
     Route: 048
     Dates: start: 20010701

REACTIONS (3)
  - NEUTROPHIL COUNT INCREASED [None]
  - ELECTROCARDIOGRAM QT PROLONGED [None]
  - WHITE BLOOD CELL COUNT INCREASED [None]
